FAERS Safety Report 5218035-8 (Version None)
Quarter: 2007Q1

REPORT INFORMATION
  Report Type: 
  Country: None (occurrence: None)
  Receive Date: 20061130
  Receipt Date: 20060915
  Transmission Date: 20070707
  Serious: Yes (Hospitalization)
  Sender: FDA-Public Use
  Company Number: US200609003902

PATIENT
  Age: 38 Year
  Sex: Female
  Weight: 65.8 kg

DRUGS (8)
  1. ZYPREXA [Suspect]
     Indication: DEPRESSION
     Dosage: 5 MG
     Dates: start: 20030301, end: 20031001
  2. ZYPREXA [Suspect]
     Indication: DEPRESSION
     Dosage: 5 MG
     Dates: start: 20031001, end: 20040701
  3. ZYPREXA [Suspect]
     Indication: DEPRESSION
     Dosage: 5 MG
     Dates: start: 20040701
  4. WELLBUTRIN [Concomitant]
  5. TOFRANIL-PM (IMIPRAMINE EMBONATE) [Concomitant]
  6. EFFEXOR [Concomitant]
  7. AMITRIPTYLINE HCL [Concomitant]
  8. NORTRIPTYLINE HCL [Concomitant]

REACTIONS (4)
  - BLOOD CHOLESTEROL INCREASED [None]
  - BLOOD TRIGLYCERIDES INCREASED [None]
  - HYPERGLYCAEMIA [None]
  - PANCREATITIS [None]
